FAERS Safety Report 7968236-0 (Version None)
Quarter: 2011Q4

REPORT INFORMATION
  Report Type: 
  Country: None (occurrence: None)
  Receive Date: 20111209
  Receipt Date: 20111202
  Transmission Date: 20120403
  Serious: Yes (Hospitalization)
  Sender: FDA-Public Use
  Company Number: PHEH2011US01610

PATIENT
  Sex: Female
  Weight: 65 kg

DRUGS (12)
  1. GABAPENTIN [Concomitant]
     Dosage: UNK 1-3 TAB, TID
     Route: 048
     Dates: start: 20110329
  2. ZOLPIDEM [Concomitant]
     Dosage: 1 DF, AT BED TIME
     Route: 048
     Dates: start: 20110329
  3. ANTIVERT [Concomitant]
     Dosage: UNK UKN, OT
  4. PRISTIQ [Concomitant]
     Dosage: 1 DF, QD
     Route: 048
     Dates: start: 20091201
  5. FLEXERIL [Concomitant]
     Dosage: 1 DF, QD, AT BEDTIME
     Route: 048
     Dates: start: 20100916
  6. GILENYA [Suspect]
     Indication: MULTIPLE SCLEROSIS
     Dosage: 0.5 MG, QD
     Route: 048
     Dates: start: 20110805, end: 20111011
  7. IBUPROFEN [Concomitant]
     Indication: ARTHRALGIA
     Dosage: 1 DF, Q8H
     Route: 048
     Dates: start: 20090603
  8. PROVIGIL [Concomitant]
     Dosage: DAILY ORALLY AS NEEDED
     Route: 048
     Dates: start: 20110329
  9. OXYCODONE HCL [Concomitant]
     Dosage: 1 DF, Q4H
     Route: 048
     Dates: start: 20110329
  10. BACLOFEN [Concomitant]
     Dosage: 0.5 TO 1 TAB
     Route: 048
     Dates: start: 20110329
  11. ACETAMINOPHEN [Concomitant]
     Dosage: 1 DF, Q4H
     Route: 048
     Dates: start: 20110329
  12. CALCIUM W/COLECALCIFEROL [Concomitant]
     Dosage: UNK UKN, DAILY

REACTIONS (10)
  - LYMPHOCYTE COUNT DECREASED [None]
  - SOMNOLENCE [None]
  - CHEST DISCOMFORT [None]
  - HEART RATE DECREASED [None]
  - NAUSEA [None]
  - ALOPECIA [None]
  - VERTIGO [None]
  - INSOMNIA [None]
  - ENERGY INCREASED [None]
  - ABDOMINAL PAIN [None]
